FAERS Safety Report 4460108-1 (Version None)
Quarter: 2004Q3

REPORT INFORMATION
  Report Type: 
  Country: None (occurrence: None)
  Receive Date: 20040928
  Receipt Date: 20031210
  Transmission Date: 20050211
  Serious: No
  Sender: FDA-Public Use
  Company Number: US-GLAXOSMITHKLINE-A0442627A

PATIENT
  Age: 59 Year
  Sex: Female

DRUGS (5)
  1. SEREVENT [Suspect]
     Dosage: 1PUFF PER DAY
     Route: 055
     Dates: start: 20031101, end: 20031126
  2. ALBUTEROL [Concomitant]
  3. SINGULAIR [Concomitant]
  4. VIT. C [Concomitant]
  5. VIT A [Concomitant]

REACTIONS (1)
  - HAEMOPTYSIS [None]
